FAERS Safety Report 25181730 (Version 1)
Quarter: 2025Q2

REPORT INFORMATION
  Report Type: Spontaneous
  Country: FR (occurrence: FR)
  Receive Date: 20250410
  Receipt Date: 20250410
  Transmission Date: 20250716
  Serious: Yes (Other)
  Sender: NOVARTIS
  Company Number: FR-002147023-NVSC2025FR026185

PATIENT
  Sex: Female

DRUGS (1)
  1. BEOVU [Suspect]
     Active Substance: BROLUCIZUMAB-DBLL
     Indication: Product used for unknown indication
     Route: 065

REACTIONS (6)
  - Vitritis [Unknown]
  - Blindness unilateral [Unknown]
  - Retinal vascular occlusion [Unknown]
  - Retinal ischaemia [Unknown]
  - Visual acuity reduced [Unknown]
  - Anterior chamber flare [Unknown]
